FAERS Safety Report 22212413 (Version 2)
Quarter: 2023Q2

REPORT INFORMATION
  Report Type: Spontaneous
  Country: US (occurrence: US)
  Receive Date: 20230414
  Receipt Date: 20230608
  Transmission Date: 20230721
  Serious: No
  Sender: FDA-Public Use
  Company Number: US-009507513-2304USA004216

PATIENT
  Age: 59 Year
  Sex: Female

DRUGS (1)
  1. TRUSOPT [Suspect]
     Active Substance: DORZOLAMIDE HYDROCHLORIDE
     Indication: Retinoschisis
     Dosage: UNK
     Route: 047

REACTIONS (2)
  - Off label use [Unknown]
  - No adverse event [Unknown]
